FAERS Safety Report 19995842 (Version 1)
Quarter: 2021Q4

REPORT INFORMATION
  Report Type: Report from Study
  Country: CA (occurrence: CA)
  Receive Date: 20211025
  Receipt Date: 20211025
  Transmission Date: 20220303
  Serious: Yes (Hospitalization, Other)
  Sender: FDA-Public Use
  Company Number: CA-UCBSA-2021049444

PATIENT
  Age: 42 Year
  Sex: Female

DRUGS (1)
  1. CERTOLIZUMAB PEGOL [Suspect]
     Active Substance: CERTOLIZUMAB PEGOL
     Indication: Ankylosing spondylitis
     Dosage: 200 MILLIGRAM, EV 2 WEEKS(QOW)
     Route: 058
     Dates: start: 20210107

REACTIONS (4)
  - Toxoplasmosis [Recovered/Resolved]
  - Mycobacterium tuberculosis complex test positive [Unknown]
  - COVID-19 [Recovered/Resolved]
  - Patient isolation [Unknown]

NARRATIVE: CASE EVENT DATE: 20210801
